FAERS Safety Report 7565679-4 (Version None)
Quarter: 2011Q2

REPORT INFORMATION
  Report Type: 
  Country: None (occurrence: None)
  Receive Date: 20110623
  Receipt Date: 20100602
  Transmission Date: 20111010
  Serious: No
  Sender: FDA-Public Use
  Company Number: US-MUTUAL PHARMACEUTICAL COMPANY, INC.-1-22890822

PATIENT
  Sex: Female

DRUGS (3)
  1. UNK [Concomitant]
  2. METOCLOPRAMIDE [Suspect]
     Route: 065
     Dates: start: 20050101, end: 20081201
  3. METOCLOPRAMIDE [Suspect]
     Route: 065
     Dates: start: 20050101, end: 20081201

REACTIONS (5)
  - TARDIVE DYSKINESIA [None]
  - EMOTIONAL DISORDER [None]
  - DYSKINESIA [None]
  - EXTRAPYRAMIDAL DISORDER [None]
  - INCORRECT DRUG ADMINISTRATION DURATION [None]
